FAERS Safety Report 12099166 (Version 1)
Quarter: 2016Q1

REPORT INFORMATION
  Report Type: Spontaneous
  Country: US (occurrence: US)
  Receive Date: 20160222
  Receipt Date: 20160222
  Transmission Date: 20160526
  Serious: No
  Sender: FDA-Public Use
  Company Number: US-PFIZER INC-2016043334

PATIENT
  Age: 82 Year
  Sex: Female
  Weight: 54.43 kg

DRUGS (5)
  1. CELEBREX [Suspect]
     Active Substance: CELECOXIB
     Indication: ARTHRITIS
     Dosage: 100 MG, 2X/DAY
     Route: 048
     Dates: start: 2009
  2. LORAZEPAM. [Concomitant]
     Active Substance: LORAZEPAM
     Indication: ESSENTIAL TREMOR
     Dosage: 0.5 MG
     Dates: start: 2015
  3. BABY ASPIRIN [Concomitant]
     Active Substance: ASPIRIN
     Indication: FAMILIAL RISK FACTOR
     Dosage: 81 MG, DAILY
  4. PANTOPRAZOLE SODIUM. [Concomitant]
     Active Substance: PANTOPRAZOLE SODIUM
     Indication: GASTRIC DISORDER
     Dosage: 40 MG
     Dates: start: 2009
  5. CELEBREX [Suspect]
     Active Substance: CELECOXIB
     Indication: PAIN

REACTIONS (6)
  - Middle insomnia [Unknown]
  - Drug ineffective [Unknown]
  - Nerve compression [Unknown]
  - Fatigue [Unknown]
  - Limb discomfort [Unknown]
  - Paraesthesia [Unknown]

NARRATIVE: CASE EVENT DATE: 20160119
